FAERS Safety Report 20098945 (Version 3)
Quarter: 2021Q4

REPORT INFORMATION
  Report Type: Spontaneous
  Country: ES (occurrence: ES)
  Receive Date: 20211122
  Receipt Date: 20211207
  Transmission Date: 20220303
  Serious: Yes (Other)
  Sender: FDA-Public Use
  Company Number: ES-BAYER-2021A217159

PATIENT

DRUGS (2)
  1. EYLEA [Suspect]
     Active Substance: AFLIBERCEPT
     Indication: Retinopathy proliferative
     Dosage: TOTAL OF ONE DOSE OF EYLEA
     Route: 031
     Dates: start: 20210722
  2. EYLEA [Suspect]
     Active Substance: AFLIBERCEPT
     Indication: Macular degeneration

REACTIONS (4)
  - Blindness [Unknown]
  - Retinal artery occlusion [Recovered/Resolved]
  - Intraocular pressure increased [Recovering/Resolving]
  - Device use issue [Unknown]

NARRATIVE: CASE EVENT DATE: 20210722
